FAERS Safety Report 20471926 (Version 1)
Quarter: 2022Q1

REPORT INFORMATION
  Report Type: Spontaneous
  Country: IN (occurrence: IN)
  Receive Date: 20220214
  Receipt Date: 20220214
  Transmission Date: 20220424
  Serious: Yes (Other)
  Sender: FDA-Public Use
  Company Number: IN-ANIPHARMA-2022-IN-000021

PATIENT
  Age: 47 Year
  Sex: Male

DRUGS (1)
  1. VANCOMYCIN HYDROCHLORIDE [Suspect]
     Active Substance: VANCOMYCIN HYDROCHLORIDE
     Indication: Pneumonia

REACTIONS (2)
  - Myeloid maturation arrest [Recovered/Resolved]
  - Leukopenia [Recovered/Resolved]
